FAERS Safety Report 9274385 (Version 3)
Quarter: 2014Q2

REPORT INFORMATION
  Report Type: Spontaneous
  Country: US (occurrence: US)
  Receive Date: 20130506
  Receipt Date: 20140404
  Transmission Date: 20141212
  Serious: Yes (Hospitalization, Other)
  Sender: FDA-Public Use
  Company Number: CHPA2013US007706

PATIENT
  Age: 44 Year
  Sex: Female
  Weight: 57.6 kg

DRUGS (4)
  1. TRANSDERM SCOP [Suspect]
     Indication: NAUSEA
     Dosage: 1 DF, ONCE/SINGLE
     Route: 062
     Dates: start: 20130416, end: 20130417
  2. TRANSDERM SCOP [Suspect]
     Indication: MOTION SICKNESS
  3. ANESTHETICS [Concomitant]
     Indication: ANAESTHESIA
     Dosage: UNK, ONCE/SINGLE
     Dates: start: 20130416, end: 20130416
  4. IBUPROFEN [Concomitant]
     Dosage: 200 MG, PRN

REACTIONS (20)
  - Hypertension [Recovered/Resolved]
  - Incoherent [Recovered/Resolved]
  - Heart rate increased [Recovered/Resolved]
  - Palpitations [Recovered/Resolved]
  - Sinus tachycardia [Recovered/Resolved]
  - Supraventricular tachycardia [Recovered/Resolved]
  - Amnesia [Recovered/Resolved]
  - Disorientation [Recovered/Resolved]
  - Aphasia [Recovered/Resolved]
  - Dysphemia [Recovered/Resolved]
  - Unresponsive to stimuli [Recovered/Resolved]
  - Fear [Recovered/Resolved]
  - Anxiety [Recovered/Resolved]
  - Headache [Unknown]
  - Confusional state [Unknown]
  - Feeling abnormal [Unknown]
  - Depression [Unknown]
  - Hypercalcaemia [Recovered/Resolved]
  - Gastrooesophageal reflux disease [Unknown]
  - Asthma [Unknown]
